FAERS Safety Report 4423073-9 (Version None)
Quarter: 2004Q3

REPORT INFORMATION
  Report Type: 
  Country: None (occurrence: None)
  Receive Date: 20040810
  Receipt Date: 20040810
  Transmission Date: 20050211
  Serious: Yes (Other)
  Sender: FDA-Public Use
  Company Number: None

PATIENT
  Age: 51 Year
  Sex: Male
  Weight: 73.1 kg

DRUGS (10)
  1. MITOXANTRONE [Suspect]
     Indication: PROSTATE CANCER
     Dosage: 14MG/M2 D1,IV
     Route: 042
     Dates: start: 20040615, end: 20040706
  2. PREDNISONE [Suspect]
     Indication: PROSTATE CANCER
     Dosage: 5 MG BID PO
     Route: 048
     Dates: start: 20040615, end: 20040706
  3. ZELODA [Concomitant]
  4. PROCRIT [Concomitant]
  5. MS CONTIN [Concomitant]
  6. FLUOROCIL [Concomitant]
  7. ILLEGIBLE OMIT PER FDA ONSITE REP [Concomitant]
  8. ILLEGIBLE OMIT PER FDA ONSITE REP [Concomitant]
  9. ILLEGIBLE OMIT PER FDA ONSITE REP [Concomitant]
  10. ILLEGIBLE OMIT PER FDA ONSITE REP [Concomitant]

REACTIONS (1)
  - HAEMOGLOBIN DECREASED [None]
